FAERS Safety Report 5557864-8 (Version None)
Quarter: 2007Q4

REPORT INFORMATION
  Report Type: 
  Country: None (occurrence: None)
  Receive Date: 20071214
  Receipt Date: 20071130
  Transmission Date: 20080405
  Serious: Yes (Hospitalization)
  Sender: FDA-Public Use
  Company Number: BE-ELI_LILLY_AND_COMPANY-BE200708004551

PATIENT
  Sex: Male
  Weight: 84 kg

DRUGS (12)
  1. CIALIS [Suspect]
     Dosage: UNK, UNKNOWN
     Route: 048
  2. CIALIS [Suspect]
     Dosage: 20 MG, AS NEEDED
     Route: 048
  3. COVERSYL [Concomitant]
     Indication: HYPERTENSION
     Dosage: 4 MG, DAILY (1/D)
     Route: 065
     Dates: start: 20070707
  4. MARCUMAR [Concomitant]
     Indication: PLATELET AGGREGATION
     Dosage: UNK, UNKNOWN
     Route: 065
     Dates: start: 20070707
  5. BURINEX [Concomitant]
     Indication: DIURETIC THERAPY
     Dosage: 2.5 MG, DAILY (1/D)
     Route: 048
     Dates: start: 20070707
  6. LIPITOR [Concomitant]
     Indication: HYPERLIPIDAEMIA
     Dosage: 20 MG, DAILY (1/D)
     Route: 065
     Dates: start: 20070707
  7. ALDACTONE [Concomitant]
     Dosage: 25 MG, 2/D
     Route: 065
     Dates: start: 20070707
  8. CORDARONE [Concomitant]
     Dosage: 200 MG, DAILY (1/D)
     Route: 065
     Dates: start: 20070707
  9. DAKAR [Concomitant]
     Dosage: 30 MG, DAILY (1/D)
     Route: 065
     Dates: start: 20070707
  10. PLAVIX [Concomitant]
     Dosage: 75 MG, DAILY (1/D)
     Route: 065
     Dates: start: 20070707, end: 20070924
  11. CARVEDILOL [Concomitant]
     Dosage: 6.25 MG, 2/D
     Route: 065
     Dates: start: 20070707, end: 20070924
  12. EMCONCOR [Concomitant]
     Dosage: 1.25 MG, DAILY (1/D)
     Route: 065
     Dates: start: 20070707

REACTIONS (2)
  - ARRHYTHMIA SUPRAVENTRICULAR [None]
  - VENTRICULAR TACHYCARDIA [None]
